FAERS Safety Report 7689594-0 (Version None)
Quarter: 2011Q3

REPORT INFORMATION
  Report Type: 
  Country: None (occurrence: None)
  Receive Date: 20110817
  Receipt Date: 20110812
  Transmission Date: 20111222
  Serious: Yes (Other)
  Sender: FDA-Public Use
  Company Number: US-PFIZER INC-2005048158

PATIENT
  Sex: Female
  Weight: 54 kg

DRUGS (11)
  1. PREMARIN [Suspect]
     Dosage: 0.625 MG
     Route: 048
     Dates: start: 19980201, end: 20000701
  2. MEDROXYPROGESTERONE ACETATE [Suspect]
     Dosage: 2.5 MG
     Route: 048
     Dates: start: 19980201, end: 20000701
  3. METOPROLOL [Concomitant]
     Indication: BLOOD PRESSURE
     Dosage: UNK
     Dates: start: 20010101
  4. PREDNISONE [Concomitant]
     Indication: ARTHRITIS
     Dosage: UNK
     Dates: start: 19930101
  5. MEDROXYPROGESTERONE ACETATE [Suspect]
     Indication: HORMONE REPLACEMENT THERAPY
     Dosage: 2.5 MG
     Dates: start: 19940101, end: 19980101
  6. PREMPRO [Suspect]
     Indication: HORMONE REPLACEMENT THERAPY
     Dosage: 0.625 MG
     Route: 048
     Dates: start: 20000701, end: 20020801
  7. ETANERCEPT [Concomitant]
     Indication: ARTHRITIS
     Dosage: UNK
     Dates: start: 20000101
  8. FUROSEMIDE [Concomitant]
     Indication: DIURETIC THERAPY
     Dosage: UNK
     Dates: start: 20010101, end: 20040101
  9. PROVERA [Suspect]
     Indication: HORMONE REPLACEMENT THERAPY
     Dosage: UNK
     Route: 048
     Dates: start: 19980201, end: 20020501
  10. PREMARIN [Suspect]
     Indication: HORMONE REPLACEMENT THERAPY
     Dosage: 0.625 MG
     Route: 048
     Dates: start: 19940101, end: 19980101
  11. SENOKOT [Concomitant]
     Indication: LAXATIVE SUPPORTIVE CARE
     Dosage: UNK
     Dates: start: 20010101

REACTIONS (1)
  - BREAST CANCER FEMALE [None]
